FAERS Safety Report 12211436 (Version 2)
Quarter: 2016Q2

REPORT INFORMATION
  Report Type: Report from Study
  Country: JP (occurrence: JP)
  Receive Date: 20160325
  Receipt Date: 20160401
  Transmission Date: 20160815
  Serious: Yes (Death)
  Sender: FDA-Public Use
  Company Number: JP-IAC JAPAN XML-GBR-2014-0018050

PATIENT
  Age: 85 Year
  Sex: Male
  Weight: 51 kg

DRUGS (16)
  1. KASHIWADOL                         /00584101/ [Concomitant]
     Indication: BACK PAIN
     Dosage: 20 ML, DAILY
     Route: 042
     Dates: start: 20130614, end: 20130926
  2. AMINO ACIDS NOS W/ELECTROLYTES NOS [Concomitant]
     Dosage: 1000 ML, DAILY
     Route: 042
     Dates: start: 20130905, end: 20130927
  3. FRANDOL [Concomitant]
     Active Substance: ISOSORBIDE DINITRATE
     Indication: MYOCARDIAL ISCHAEMIA
     Dosage: 40 MG, DAILY
     Route: 061
     Dates: start: 20130620, end: 20130927
  4. ALDIOXA [Concomitant]
     Active Substance: ALDIOXA
     Dosage: 200 MG, DAILY
     Route: 048
     Dates: start: 20130627, end: 20130919
  5. SENNOSIDE                          /00571901/ [Concomitant]
     Active Substance: SENNOSIDES A AND B
     Indication: CONSTIPATION
     Dosage: 24 MG, DAILY
     Dates: start: 20130705, end: 20130919
  6. MEROPEN                            /01250501/ [Concomitant]
     Active Substance: MEROPENEM
     Dosage: 1 G, DAILY
     Route: 042
     Dates: start: 20130709, end: 20130715
  7. INDOMETACIN [Concomitant]
     Active Substance: INDOMETHACIN
     Dosage: 35 MG, DAILY
     Route: 061
     Dates: start: 20130614, end: 20130704
  8. POTACOL-R [Concomitant]
     Dosage: 1000 UNK, UNK
     Route: 042
     Dates: start: 20130816, end: 20130904
  9. BTDS 5 MG [Suspect]
     Active Substance: BUPRENORPHINE
     Indication: ANALGESIC THERAPY
     Dosage: 5 MCG, Q1H
     Route: 062
     Dates: start: 20130701, end: 20130927
  10. ADALAT [Concomitant]
     Active Substance: NIFEDIPINE
     Indication: HYPERTENSION
     Dosage: 20 MG, DAILY
     Route: 048
     Dates: start: 20130619, end: 20130819
  11. CELECOX [Concomitant]
     Active Substance: CELECOXIB
     Indication: BACK PAIN
     Dosage: 200 MG, DAILY
     Route: 048
     Dates: start: 20130627, end: 20130919
  12. GLYCERIN                           /00200601/ [Concomitant]
     Active Substance: GLYCERIN
     Indication: CONSTIPATION
     Dosage: 120 ML, PRN
     Route: 054
     Dates: start: 20130624
  13. BLOPRESS [Concomitant]
     Active Substance: CANDESARTAN CILEXETIL
     Indication: HYPERTENSION
     Dosage: 4 MG, DAILY
     Route: 048
     Dates: start: 20130615, end: 20130819
  14. NEUROTROPIN                        /00398601/ [Concomitant]
     Active Substance: CYANOCOBALAMIN\LIDOCAINE HYDROCHLORIDE\PYRIDOXINE HYDROCHLORIDE\THIAMINE HYDROCHLORIDE
     Indication: BACK PAIN
     Dosage: 3.6 DF, DAILY
     Route: 042
     Dates: start: 20130614, end: 20130926
  15. POTACOL-R [Concomitant]
     Dosage: 500 ML, DAILY
     Route: 042
     Dates: start: 20130614, end: 20130815
  16. VOLTAREN [Concomitant]
     Active Substance: DICLOFENAC SODIUM
     Indication: ANALGESIC THERAPY
     Dosage: 50 MG, TIW, PRN
     Route: 054
     Dates: start: 20130614

REACTIONS (6)
  - Constipation [Recovered/Resolved]
  - Dehydration [Recovering/Resolving]
  - Decreased appetite [Recovering/Resolving]
  - Disseminated intravascular coagulation [Fatal]
  - Pneumonia [Recovered/Resolved]
  - Dysphagia [Recovering/Resolving]

NARRATIVE: CASE EVENT DATE: 20130701
